FAERS Safety Report 11783154 (Version 1)
Quarter: 2015Q4

REPORT INFORMATION
  Report Type: Spontaneous
  Country: NO (occurrence: NO)
  Receive Date: 20151127
  Receipt Date: 20151127
  Transmission Date: 20160305
  Serious: Yes (Hospitalization)
  Sender: FDA-Public Use
  Company Number: NO-ASTRAZENECA-2015SF12914

PATIENT
  Age: 24706 Day
  Sex: Male

DRUGS (11)
  1. SEROQUEL [Suspect]
     Active Substance: QUETIAPINE FUMARATE
     Indication: DEPRESSION
     Route: 048
     Dates: start: 20091012, end: 20151001
  2. SEROQUEL [Suspect]
     Active Substance: QUETIAPINE FUMARATE
     Indication: ABNORMAL DREAMS
     Route: 048
     Dates: start: 20091012, end: 20151001
  3. SEROQUEL [Suspect]
     Active Substance: QUETIAPINE FUMARATE
     Indication: SENSATION OF FOREIGN BODY
     Route: 048
     Dates: start: 20091012, end: 20151001
  4. CONCERTA [Concomitant]
     Active Substance: METHYLPHENIDATE HYDROCHLORIDE
  5. ZOPILONE [Concomitant]
  6. SEROQUEL [Suspect]
     Active Substance: QUETIAPINE FUMARATE
     Indication: INSOMNIA
     Route: 048
     Dates: start: 20091012, end: 20151001
  7. SEROQUEL [Suspect]
     Active Substance: QUETIAPINE FUMARATE
     Indication: NIGHTMARE
     Route: 048
     Dates: start: 20091012, end: 20151001
  8. SEROQUEL [Suspect]
     Active Substance: QUETIAPINE FUMARATE
     Indication: ANXIETY
     Route: 048
     Dates: start: 20091012, end: 20151001
  9. LEVAXIN [Concomitant]
     Active Substance: LEVOTHYROXINE SODIUM
  10. FLUOXETINE [Concomitant]
     Active Substance: FLUOXETINE HYDROCHLORIDE
  11. HIPREX [Concomitant]
     Active Substance: METHENAMINE HIPPURATE

REACTIONS (10)
  - Weight increased [Unknown]
  - Depression [Unknown]
  - Irritability [Unknown]
  - Tardive dyskinesia [Unknown]
  - Oropharyngeal spasm [Unknown]
  - Sexual dysfunction [Unknown]
  - Vision blurred [Unknown]
  - Dysarthria [Unknown]
  - Dry mouth [Unknown]
  - Product use issue [Unknown]

NARRATIVE: CASE EVENT DATE: 20131119
